FAERS Safety Report 9453306 (Version 1)
Quarter: 2013Q3

REPORT INFORMATION
  Report Type: Not Available
  Country: US (occurrence: US)
  Receive Date: 20130808
  Receipt Date: 20130808
  Transmission Date: 20140515
  Serious: No
  Sender: FDA-Public Use
  Company Number: US-LUNDBECK-DKLU1067294

PATIENT
  Sex: Male

DRUGS (1)
  1. SABRIL (FOR ORAL SOLUTION) [Suspect]
     Indication: EPILEPSY
     Route: 048
     Dates: start: 20101122

REACTIONS (5)
  - Agitation [Unknown]
  - Pollakiuria [Unknown]
  - Disturbance in attention [Unknown]
  - Mood swings [Recovered/Resolved]
  - Depression [Recovered/Resolved]
